FAERS Safety Report 4834937-6 (Version None)
Quarter: 2005Q4

REPORT INFORMATION
  Report Type: 
  Country: None (occurrence: None)
  Receive Date: 20051122
  Receipt Date: 20051107
  Transmission Date: 20060501
  Serious: Yes (Other)
  Sender: FDA-Public Use
  Company Number: JP-BRISTOL-MYERS SQUIBB COMPANY-13178801

PATIENT
  Age: 45 Year
  Sex: Female

DRUGS (1)
  1. GATIFLOXACIN [Suspect]
     Indication: BARTHOLIN'S ABSCESS
     Route: 048
     Dates: start: 20050913, end: 20050913

REACTIONS (1)
  - ANAPHYLACTIC SHOCK [None]
